FAERS Safety Report 7787311-7 (Version None)
Quarter: 2011Q3

REPORT INFORMATION
  Report Type: 
  Country: None (occurrence: None)
  Receive Date: 20110929
  Receipt Date: 20110921
  Transmission Date: 20111222
  Serious: Yes (Other)
  Sender: FDA-Public Use
  Company Number: PHHY2011RO83936

PATIENT
  Age: 40 Year
  Sex: Male

DRUGS (2)
  1. VALPROATE SODIUM [Suspect]
     Dosage: 1000 MG/DAY
     Route: 065
  2. QUETIAPINE [Suspect]
     Dosage: 600 MG/DAY
     Route: 065

REACTIONS (2)
  - DYSLIPIDAEMIA [None]
  - BLOOD TRIGLYCERIDES INCREASED [None]
